FAERS Safety Report 16382982 (Version 1)
Quarter: 2019Q2

REPORT INFORMATION
  Report Type: Spontaneous
  Country: US (occurrence: US)
  Receive Date: 20190513
  Receipt Date: 20190513
  Transmission Date: 20190711
  Serious: Yes (Hospitalization, Disabling)
  Sender: FDA-Public Use
  Company Number: None

PATIENT
  Age: 87 Year
  Sex: Female
  Weight: 76.5 kg

DRUGS (7)
  1. HYDROLOZINE [Concomitant]
  2. SYNTHROID [Concomitant]
     Active Substance: LEVOTHYROXINE SODIUM
  3. LOSARTAN. [Suspect]
     Active Substance: LOSARTAN
     Indication: HYPERTENSION
     Dosage: ?          QUANTITY:1 TABLET(S);OTHER ROUTE:BY MOUTH?
  4. PRAVASTATIN. [Concomitant]
     Active Substance: PRAVASTATIN
  5. PEPCID [Concomitant]
     Active Substance: FAMOTIDINE
  6. CRANBERRY. [Concomitant]
     Active Substance: CRANBERRY
  7. XANAX [Concomitant]
     Active Substance: ALPRAZOLAM

REACTIONS (4)
  - Dehydration [None]
  - Blood sodium decreased [None]
  - Loss of consciousness [None]
  - Rotator cuff syndrome [None]

NARRATIVE: CASE EVENT DATE: 20190409
